FAERS Safety Report 13779637 (Version 2)
Quarter: 2017Q3

REPORT INFORMATION
  Report Type: Spontaneous
  Country: FR (occurrence: FR)
  Receive Date: 20170722
  Receipt Date: 20170824
  Transmission Date: 20171127
  Serious: Yes (Hospitalization)
  Sender: FDA-Public Use
  Company Number: FR-ACCORD-053759

PATIENT
  Age: 47 Year
  Sex: Female
  Weight: 78 kg

DRUGS (1)
  1. CISPLATIN ACCORD [Suspect]
     Active Substance: CISPLATIN
     Indication: CERVIX CARCINOMA STAGE II
     Dosage: STRENGTH: 1 MG/ML
     Route: 042
     Dates: start: 20170518, end: 20170608

REACTIONS (6)
  - Thrombophlebitis [Recovering/Resolving]
  - Motor dysfunction [Recovering/Resolving]
  - Cerebral haematoma [Recovering/Resolving]
  - Vasculitis cerebral [Recovering/Resolving]
  - Sensory loss [Recovering/Resolving]
  - Cerebrovascular accident [Recovering/Resolving]

NARRATIVE: CASE EVENT DATE: 20170612
